FAERS Safety Report 4408880-0 (Version None)
Quarter: 2004Q3

REPORT INFORMATION
  Report Type: 
  Country: None (occurrence: None)
  Receive Date: 20040727
  Receipt Date: 20040712
  Transmission Date: 20050211
  Serious: Yes (Death)
  Sender: FDA-Public Use
  Company Number: PH-GLAXOSMITHKLINE-B0340301A

PATIENT
  Age: 36 Year
  Sex: Female

DRUGS (3)
  1. ALBENDAZOLE [Suspect]
     Route: 048
     Dates: start: 20040623
  2. DIETHYLCARBAMAZINE CITRATE [Suspect]
     Route: 048
     Dates: start: 20040623
  3. KALIUM DURULE [Concomitant]

REACTIONS (5)
  - CARDIAC ARREST [None]
  - CHEST DISCOMFORT [None]
  - LOSS OF CONSCIOUSNESS [None]
  - MUSCULAR WEAKNESS [None]
  - NAUSEA [None]
